FAERS Safety Report 6065223-7 (Version None)
Quarter: 2009Q1

REPORT INFORMATION
  Report Type: 
  Country: None (occurrence: None)
  Receive Date: 20090204
  Receipt Date: 20090126
  Transmission Date: 20090719
  Serious: Yes (Other)
  Sender: FDA-Public Use
  Company Number: PHHY2009CA02910

PATIENT
  Sex: Male

DRUGS (12)
  1. ACLASTA [Suspect]
     Indication: OSTEOPOROSIS
     Dosage: UNK
     Route: 042
     Dates: start: 20081119, end: 20081119
  2. CALCIUM CARBONATE [Concomitant]
     Dosage: 500 MG, TID
     Route: 048
  3. VITAMIN D [Concomitant]
     Dosage: 1000 U, QD
     Route: 048
  4. COD-LIVER OIL [Concomitant]
  5. ZINK [Concomitant]
     Dosage: 60 MG, QD
  6. CARDIZEM [Concomitant]
     Dosage: 120 MG, QD
  7. ASPIRIN [Concomitant]
     Dosage: 81 MG, QD
  8. OMEPRAZOLE [Concomitant]
     Indication: GASTROOESOPHAGEAL REFLUX DISEASE
     Dosage: 20 MG, QD
     Route: 048
  9. VALIUM [Concomitant]
     Indication: ANXIETY
     Dosage: 5 MG, QD
     Route: 048
  10. VALIUM [Concomitant]
     Indication: BURNING SENSATION
  11. ANGIOTENSIN II ANTAGONISTS [Concomitant]
  12. INFLUENZA VACCINE [Concomitant]
     Dosage: UNK
     Dates: start: 20081021

REACTIONS (12)
  - CHILLS [None]
  - EYE SWELLING [None]
  - HEADACHE [None]
  - INFLUENZA LIKE ILLNESS [None]
  - LIP SWELLING [None]
  - NASOPHARYNGITIS [None]
  - NAUSEA [None]
  - ORAL PAIN [None]
  - PRURITUS [None]
  - PYREXIA [None]
  - RASH [None]
  - SKIN DISCOLOURATION [None]
